FAERS Safety Report 11222986 (Version 1)
Quarter: 2015Q2

REPORT INFORMATION
  Report Type: Spontaneous
  Country: US (occurrence: US)
  Receive Date: 20150626
  Receipt Date: 20150626
  Transmission Date: 20150821
  Serious: Yes (Other)
  Sender: FDA-Public Use
  Company Number: US-CELGENEUS-USA-2015063742

PATIENT
  Sex: Female

DRUGS (8)
  1. REVLIMID [Suspect]
     Active Substance: LENALIDOMIDE
     Dosage: 2.5-15MG
     Route: 048
     Dates: start: 201304
  2. THALOMID [Suspect]
     Active Substance: THALIDOMIDE
     Route: 065
     Dates: start: 201411
  3. MEKINIST [Concomitant]
     Active Substance: TRAMETINIB DIMETHYL SULFOXIDE
     Indication: PRODUCT USED FOR UNKNOWN INDICATION
     Route: 065
  4. REVLIMID [Suspect]
     Active Substance: LENALIDOMIDE
     Route: 048
     Dates: start: 20150523
  5. REVLIMID [Suspect]
     Active Substance: LENALIDOMIDE
     Indication: PLASMA CELL MYELOMA
     Route: 048
     Dates: start: 201011
  6. THALOMID [Suspect]
     Active Substance: THALIDOMIDE
     Route: 065
     Dates: start: 20150523
  7. THALOMID [Suspect]
     Active Substance: THALIDOMIDE
     Indication: PLASMA CELL MYELOMA
     Route: 065
     Dates: start: 201407
  8. THALOMID [Suspect]
     Active Substance: THALIDOMIDE
     Route: 065
     Dates: start: 201501

REACTIONS (1)
  - Toothache [Unknown]
